FAERS Safety Report 7393709-1 (Version None)
Quarter: 2011Q1

REPORT INFORMATION
  Report Type: 
  Country: None (occurrence: None)
  Receive Date: 20110331
  Receipt Date: 20110331
  Transmission Date: 20110831
  Serious: No
  Sender: FDA-Public Use
  Company Number: None

PATIENT
  Sex: Male
  Weight: 90.7194 kg

DRUGS (2)
  1. PRILOSEC [Suspect]
     Indication: BARRETT'S OESOPHAGUS
     Dosage: 20 MG ONCE QD
     Dates: start: 20090101
  2. PRILOSEC [Suspect]
     Indication: BARRETT'S OESOPHAGUS
     Dosage: 20 MG ONCE QD
     Dates: start: 20000101

REACTIONS (1)
  - DRUG INEFFECTIVE [None]
